FAERS Safety Report 13918830 (Version 1)
Quarter: 2017Q3

REPORT INFORMATION
  Report Type: Spontaneous
  Country: US (occurrence: US)
  Receive Date: 20170830
  Receipt Date: 20170830
  Transmission Date: 20171127
  Serious: Yes (Hospitalization, Other)
  Sender: FDA-Public Use
  Company Number: US-KADMON PHARMACEUTICALS, LLC-KAD201708-000946

PATIENT
  Age: 31 Year
  Sex: Female

DRUGS (3)
  1. PEG-INTERFERON ALFA-2A [Suspect]
     Active Substance: PEGINTERFERON ALFA-2A
     Indication: CHRONIC HEPATITIS C
     Dosage: PROCLICK AUTOINJECTOR
     Route: 058
     Dates: start: 20130807
  2. RIBASPHERE [Suspect]
     Active Substance: RIBAVIRIN
     Indication: CHRONIC HEPATITIS C
     Route: 048
     Dates: start: 20130807
  3. AZITHROMYCIN ANHYDROUS. [Concomitant]
     Active Substance: AZITHROMYCIN ANHYDROUS

REACTIONS (24)
  - Musculoskeletal pain [Unknown]
  - Anxiety [Unknown]
  - Anaemia [Unknown]
  - Delusion [Unknown]
  - Memory impairment [Unknown]
  - Dry mouth [Unknown]
  - Nausea [Unknown]
  - Vertigo [Unknown]
  - Dyspnoea [Unknown]
  - Ammonia increased [Unknown]
  - Fatigue [Unknown]
  - Hyperhidrosis [Unknown]
  - Oral mucosal blistering [Unknown]
  - Blister [Unknown]
  - Dizziness [Unknown]
  - Dehydration [Unknown]
  - Loss of consciousness [Unknown]
  - Tongue blistering [Unknown]
  - Candida infection [Unknown]
  - Confusional state [Unknown]
  - Insomnia [Unknown]
  - Hypotension [Unknown]
  - Decreased appetite [Unknown]
  - Depression [Unknown]

NARRATIVE: CASE EVENT DATE: 20130924
